FAERS Safety Report 19174747 (Version 3)
Quarter: 2021Q2

REPORT INFORMATION
  Report Type: Spontaneous
  Country: CA (occurrence: CA)
  Receive Date: 20210423
  Receipt Date: 20210605
  Transmission Date: 20210717
  Serious: Yes (Other)
  Sender: FDA-Public Use
  Company Number: CA-CELLTRION INC.-2021CA005538

PATIENT

DRUGS (2)
  1. INFLECTRA [Suspect]
     Active Substance: INFLIXIMAB-DYYB
     Indication: COLITIS ULCERATIVE
     Dosage: 800 MG (10 MG/KG), EVERY (Q) 2, 6 WEEKS, THEN EVERY 8 WEEKS
     Route: 042
     Dates: start: 20200816, end: 20210325
  2. VANCOMYCIN [Concomitant]
     Active Substance: VANCOMYCIN
     Dosage: 125 MG,STARTED AT TWICE DAILY, THEN REDUCING TO ONCE DAILY UNTIL TREATMENT COMPLETED
     Route: 065

REACTIONS (4)
  - Impaired quality of life [Unknown]
  - Treatment failure [Unknown]
  - Clostridium difficile infection [Unknown]
  - Drug ineffective [Unknown]
